FAERS Safety Report 13898242 (Version 1)
Quarter: 2017Q3

REPORT INFORMATION
  Report Type: Spontaneous
  Country: US (occurrence: US)
  Receive Date: 20170823
  Receipt Date: 20170823
  Transmission Date: 20171127
  Serious: Yes (Other)
  Sender: FDA-Public Use
  Company Number: PHEH2017US026197

PATIENT
  Age: 38 Year
  Sex: Male
  Weight: 81.64 kg

DRUGS (1)
  1. ENTRESTO [Suspect]
     Active Substance: SACUBITRIL\VALSARTAN
     Indication: CARDIAC FAILURE CHRONIC
     Dosage: 50 MG, BID
     Route: 048
     Dates: start: 20170124, end: 20170720

REACTIONS (4)
  - Alanine aminotransferase increased [Unknown]
  - Rhabdomyolysis [Recovered/Resolved with Sequelae]
  - Aspartate aminotransferase increased [Unknown]
  - Blood urea increased [Unknown]

NARRATIVE: CASE EVENT DATE: 20170720
